FAERS Safety Report 17543771 (Version 1)
Quarter: 2020Q1

REPORT INFORMATION
  Report Type: Spontaneous
  Country: DE (occurrence: DE)
  Receive Date: 20200316
  Receipt Date: 20200316
  Transmission Date: 20200409
  Serious: Yes (Hospitalization)
  Sender: FDA-Public Use
  Company Number: DE-TEVA-2020-DE-1200268

PATIENT
  Age: 75 Year
  Sex: Female

DRUGS (8)
  1. METAMIZOL [Suspect]
     Active Substance: METAMIZOLE SODIUM
     Dosage: 2000 MILLIGRAM DAILY; 500 MG, 1-1-1-1
  2. PANTOPRAZOL [Concomitant]
     Active Substance: PANTOPRAZOLE SODIUM
     Dosage: 80 MILLIGRAM DAILY; 40 MG, 1-0-1-0
  3. ALLOPURINOL. [Concomitant]
     Active Substance: ALLOPURINOL
     Dosage: 100 MILLIGRAM DAILY; 100 MG, 1-0-0-0
  4. MACROGOL [Suspect]
     Active Substance: POLYETHYLENE GLYCOLS
     Dosage: 1-0-0-0, BAG
  5. LEVOTHYROXIN-NATRIUM [Concomitant]
     Active Substance: LEVOTHYROXINE SODIUM
     Dosage: 25 MICROGRAM, 1-0-0-0
  6. BISOPROLOL/HYDROCHLOROTHIAZID [Suspect]
     Active Substance: BISOPROLOL FUMARATE\HYDROCHLOROTHIAZIDE
     Dosage: 5|12.5 MG, 1-0-0-0
  7. TARGIN 10MG/5MG COMPRIMIDOS DE LIBERACION PROLONGADA [Suspect]
     Active Substance: NALOXONE HYDROCHLORIDE\OXYCODONE HYDROCHLORIDE
     Dosage: 10|5 MG, 1-0-1-0
  8. OPIPRAMOL [Suspect]
     Active Substance: OPIPRAMOL
     Dosage: 50 MILLIGRAM DAILY; 50 MG, 1-0-0-0

REACTIONS (8)
  - Confusional state [Unknown]
  - Hypophagia [Unknown]
  - Gait disturbance [Unknown]
  - Dyspepsia [Unknown]
  - Asthenia [Unknown]
  - Fluid intake reduced [Unknown]
  - Abdominal pain [Unknown]
  - General physical health deterioration [Unknown]
